FAERS Safety Report 16472289 (Version 1)
Quarter: 2019Q2

REPORT INFORMATION
  Report Type: Report from Study
  Country: AU (occurrence: AU)
  Receive Date: 20190625
  Receipt Date: 20190625
  Transmission Date: 20190711
  Serious: Yes (Other)
  Sender: FDA-Public Use
  Company Number: AU-ALXN-A201713677AA

PATIENT
  Age: 55 Year
  Sex: Male

DRUGS (3)
  1. SOLIRIS [Suspect]
     Active Substance: ECULIZUMAB
     Dosage: 900 MG, Q2W
     Route: 042
  2. SOLIRIS [Suspect]
     Active Substance: ECULIZUMAB
     Indication: PAROXYSMAL NOCTURNAL HAEMOGLOBINURIA
     Dosage: 600 MG, QW
     Route: 042
     Dates: start: 20130422
  3. SOLIRIS [Suspect]
     Active Substance: ECULIZUMAB
     Dosage: 900 MG, EVERY 12 DAYS
     Route: 042

REACTIONS (7)
  - Haemolysis [Unknown]
  - Haemoglobin decreased [Unknown]
  - Liver disorder [Not Recovered/Not Resolved]
  - Iron overload [Not Recovered/Not Resolved]
  - Therapeutic response shortened [Not Recovered/Not Resolved]
  - Haemoglobinuria [Unknown]
  - Disease progression [Unknown]

NARRATIVE: CASE EVENT DATE: 201903
